FAERS Safety Report 25530210 (Version 2)
Quarter: 2025Q3

REPORT INFORMATION
  Report Type: Spontaneous
  Country: EU (occurrence: EU)
  Receive Date: 20250708
  Receipt Date: 20250728
  Transmission Date: 20251021
  Serious: Yes (Other)
  Sender: TAIHO ONCOLOGY INC
  Company Number: EU-MMM-Otsuka-RBHPODAF

PATIENT
  Age: 75 Year
  Sex: Male

DRUGS (10)
  1. INQOVI [Suspect]
     Active Substance: CEDAZURIDINE\DECITABINE
     Indication: Acute myeloid leukaemia
     Route: 048
  2. BROMAZEPAM [Concomitant]
     Active Substance: BROMAZEPAM
     Indication: Psychiatric symptom
     Dosage: 3 MG EVERY 8 HOURS (Q8H)
     Route: 065
  3. PAROXETINE [Concomitant]
     Active Substance: PAROXETINE
     Indication: Psychiatric symptom
     Dosage: 20 MG EVERY 8 HOURS (Q8H)
     Route: 065
  4. MIRTAZAPINE [Concomitant]
     Active Substance: MIRTAZAPINE
     Indication: Psychiatric symptom
     Dosage: 15 MG, QD (EVERY 24 HOURS)
     Route: 065
  5. LORMETAZEPAM [Concomitant]
     Active Substance: LORMETAZEPAM
     Indication: Psychiatric symptom
     Route: 065
  6. DEANOL PIDOLATE\HEPTAMINOL HYDROCHLORIDE [Concomitant]
     Active Substance: DEANOL PIDOLATE\HEPTAMINOL HYDROCHLORIDE
     Indication: Psychiatric symptom
     Route: 065
  7. FINASTERIDE [Concomitant]
     Active Substance: FINASTERIDE
     Indication: Benign prostatic hyperplasia
     Dosage: 5 MG QD (EVERY 24 HOURS)
     Route: 065
  8. TAMSULOSIN [Concomitant]
     Active Substance: TAMSULOSIN
     Indication: Benign prostatic hyperplasia
     Dosage: 0.4 MG, QD (EVERY 24 HOURS)
     Route: 065
  9. OMEPRAZOLE [Concomitant]
     Active Substance: OMEPRAZOLE
     Indication: Product used for unknown indication
     Dosage: 20 MG, DAILY
     Route: 065
  10. UNSPECIFIED INGREDIENT [Concomitant]
     Active Substance: UNSPECIFIED INGREDIENT
     Indication: Product used for unknown indication
     Route: 065

REACTIONS (2)
  - Toxic skin eruption [Recovered/Resolved]
  - Anaemia [Recovered/Resolved]
